FAERS Safety Report 7759069 (Version 4)
Quarter: 2015Q4

REPORT INFORMATION
  Report Type: Spontaneous
  Country: US (occurrence: US)
  Receive Date: 20110113
  Receipt Date: 20151204
  Transmission Date: 20160305
  Serious: Yes (Hospitalization)
  Sender: FDA-Public Use
  Company Number: US-BAYER-2011-003487

PATIENT
  Age: 47 Year
  Sex: Female
  Weight: 68 kg

DRUGS (6)
  1. VITAMIN B12 [Concomitant]
     Active Substance: CYANOCOBALAMIN
  2. METRONIDAZOLE. [Concomitant]
     Active Substance: METRONIDAZOLE
     Dosage: UNK
     Route: 061
     Dates: start: 20090325
  3. OCELLA [Suspect]
     Active Substance: DROSPIRENONE\ETHINYL ESTRADIOL
     Indication: CONTRACEPTION
     Dosage: UNK
     Route: 048
     Dates: start: 200901, end: 20090322
  4. IRON [Concomitant]
     Active Substance: IRON
     Dosage: UNK UNK, BID
     Route: 048
  5. OCELLA [Suspect]
     Active Substance: DROSPIRENONE\ETHINYL ESTRADIOL
     Indication: CONTRACEPTION
     Route: 048
  6. OCELLA [Suspect]
     Active Substance: DROSPIRENONE\ETHINYL ESTRADIOL
     Indication: CONTRACEPTION
     Route: 048

REACTIONS (15)
  - VIIth nerve paralysis [None]
  - Mental impairment [None]
  - Emotional distress [None]
  - Amnesia [None]
  - Pain [None]
  - Gait disturbance [None]
  - Hearing impaired [None]
  - Cerebrovascular accident [None]
  - Fatigue [None]
  - Thrombotic stroke [None]
  - Injury [None]
  - Headache [None]
  - Asthenia [None]
  - Fear [None]
  - Speech disorder [None]

NARRATIVE: CASE EVENT DATE: 20090322
